FAERS Safety Report 5943315-8 (Version None)
Quarter: 2008Q4

REPORT INFORMATION
  Report Type: 
  Country: None (occurrence: None)
  Receive Date: 20081106
  Receipt Date: 20081031
  Transmission Date: 20090506
  Serious: Yes (Other)
  Sender: FDA-Public Use
  Company Number: PHHY2008DE19806

PATIENT
  Sex: Male

DRUGS (8)
  1. RASILEZ [Suspect]
     Dosage: 150 MG, QD
  2. DRUG THERAPY NOS [Suspect]
  3. DIOVAN [Concomitant]
     Indication: CARDIAC FAILURE
     Dosage: 160 MG/DAY
     Dates: end: 20080801
  4. DIGOSTADA [Concomitant]
  5. CARVEDILOL [Concomitant]
  6. PANTOZOL [Concomitant]
  7. LEVOTHYROXINE SODIUM [Concomitant]
  8. MARCUMAR [Concomitant]

REACTIONS (3)
  - BLOOD CREATININE INCREASED [None]
  - BLOOD UREA INCREASED [None]
  - RENAL FAILURE [None]
